FAERS Safety Report 5958256-X (Version None)
Quarter: 2008Q4

REPORT INFORMATION
  Report Type: 
  Country: None (occurrence: None)
  Receive Date: 20081117
  Receipt Date: 20081110
  Transmission Date: 20090506
  Serious: Yes (Death)
  Sender: FDA-Public Use
  Company Number: US025014

PATIENT
  Age: 51 Year
  Sex: Male

DRUGS (1)
  1. TREANDA [Suspect]
     Dosage: INTRAVENOUS
     Route: 042

REACTIONS (1)
  - DEATH [None]
